FAERS Safety Report 22386895 (Version 1)
Quarter: 2023Q2

REPORT INFORMATION
  Report Type: Spontaneous
  Country: US (occurrence: US)
  Receive Date: 20230531
  Receipt Date: 20230531
  Transmission Date: 20230721
  Serious: Yes (Other)
  Sender: FDA-Public Use
  Company Number: US-drreddys-SPO/USA/23/0165994

PATIENT
  Age: 13 Year

DRUGS (1)
  1. ZENATANE [Suspect]
     Active Substance: ISOTRETINOIN
     Indication: Product used for unknown indication
     Dosage: RMA ISSUE DATE: 13 FEBRUARY 2023 09:03:28 AM, 13 MARCH 2023 02:25:11 PM AND 10 APRIL 2023 09:47:07 A

REACTIONS (1)
  - Mood altered [Unknown]
